FAERS Safety Report 4584174-8 (Version None)
Quarter: 2005Q1

REPORT INFORMATION
  Report Type: 
  Country: None (occurrence: None)
  Receive Date: 20050125
  Receipt Date: 20041028
  Transmission Date: 20050727
  Serious: No
  Sender: FDA-Public Use
  Company Number: USA041082630

PATIENT
  Age: 58 Year
  Sex: Female

DRUGS (3)
  1. FORTEO [Suspect]
     Indication: OSTEOPOROSIS
     Dates: start: 20040927
  2. XANAX (ALPRAZOLAM DUM) [Concomitant]
  3. ATENOLOL [Concomitant]

REACTIONS (1)
  - INJECTION SITE ERYTHEMA [None]
